FAERS Safety Report 7370802-0 (Version None)
Quarter: 2011Q1

REPORT INFORMATION
  Report Type: 
  Country: None (occurrence: None)
  Receive Date: 20110324
  Receipt Date: 20110315
  Transmission Date: 20110831
  Serious: Yes (Hospitalization)
  Sender: FDA-Public Use
  Company Number: US-BIOGENIDEC-2009BI029090

PATIENT
  Age: 59 Year
  Sex: Female

DRUGS (5)
  1. PLAQUENIL [Concomitant]
     Indication: SARCOIDOSIS
  2. ALBUTEROL [Concomitant]
     Indication: SARCOIDOSIS
  3. FORADIL [Concomitant]
     Indication: SARCOIDOSIS
  4. AVONEX [Suspect]
     Indication: MULTIPLE SCLEROSIS
     Route: 030
     Dates: start: 20020730
  5. CELEBREX [Concomitant]
     Indication: SARCOIDOSIS

REACTIONS (11)
  - HYPERTENSION [None]
  - ARTHRITIS [None]
  - CARDIAC DISORDER [None]
  - VISUAL IMPAIRMENT [None]
  - WEIGHT INCREASED [None]
  - FIBROMYALGIA [None]
  - MUSCLE SPASMS [None]
  - GAIT DISTURBANCE [None]
  - JOINT INJURY [None]
  - WEIGHT LOSS POOR [None]
  - BLOOD CHOLESTEROL INCREASED [None]
